FAERS Safety Report 4664080-0 (Version None)
Quarter: 2005Q2

REPORT INFORMATION
  Report Type: 
  Country: None (occurrence: None)
  Receive Date: 20050516
  Receipt Date: 20050516
  Transmission Date: 20051028
  Serious: Yes (Life-Threatening, Hospitalization)
  Sender: FDA-Public Use
  Company Number: None

PATIENT
  Age: 58 Year
  Sex: Male
  Weight: 81.9 kg

DRUGS (5)
  1. WARFARIN [Suspect]
     Indication: DEEP VEIN THROMBOSIS
     Dosage: 2.5MG ON MONDAYS 5 MG ALL OTHER DAYS
     Dates: start: 20040405, end: 20050222
  2. MORPHINE SULFATE [Concomitant]
  3. PROPOXYPHENE N 100/APAP [Concomitant]
  4. DEXAMETHASONE/TOBRAMYC [Concomitant]
  5. SIMVASTATIN [Concomitant]

REACTIONS (1)
  - SUBDURAL HAEMATOMA [None]
